FAERS Safety Report 4514608-6 (Version None)
Quarter: 2004Q4

REPORT INFORMATION
  Report Type: 
  Country: None (occurrence: None)
  Receive Date: 20040927
  Receipt Date: 20040524
  Transmission Date: 20050328
  Serious: No
  Sender: FDA-Public Use
  Company Number: US077703

PATIENT
  Age: 48 Year
  Sex: Male

DRUGS (7)
  1. NEULASTA [Suspect]
     Indication: CHEMOTHERAPY
     Dosage: 6 MG, 1 IN 1 DAYS, SC
     Route: 058
     Dates: start: 20040501
  2. CYTARABINE [Concomitant]
  3. DAUNORUBICIN [Concomitant]
  4. HYDROMORPHONE HYDROCHLORIDE [Concomitant]
  5. ONDANSETRON HCL [Concomitant]
  6. LEVOFLOXACIN [Concomitant]
  7. SARGRAMOSTIN [Concomitant]

REACTIONS (3)
  - ACUTE MONOCYTIC LEUKAEMIA [None]
  - DISEASE PROGRESSION [None]
  - THERAPEUTIC RESPONSE DELAYED [None]
